FAERS Safety Report 23536833 (Version 1)
Quarter: 2024Q1

REPORT INFORMATION
  Report Type: Spontaneous
  Country: US (occurrence: US)
  Receive Date: 20240219
  Receipt Date: 20240219
  Transmission Date: 20240410
  Serious: No
  Sender: FDA-Public Use
  Company Number: US-P+L Developments of Newyork Corporation-2153364

PATIENT

DRUGS (1)
  1. ADAPALENE [Suspect]
     Active Substance: ADAPALENE
     Route: 065

REACTIONS (4)
  - Application site irritation [Unknown]
  - Drug ineffective [Unknown]
  - Dry skin [Unknown]
  - Erythema [Unknown]
